FAERS Safety Report 17016523 (Version 1)
Quarter: 2019Q4

REPORT INFORMATION
  Report Type: Report from Study
  Country: KR (occurrence: KR)
  Receive Date: 20191111
  Receipt Date: 20191111
  Transmission Date: 20200122
  Serious: Yes (Death, Other)
  Sender: FDA-Public Use
  Company Number: KR-JNJFOC-20191100959

PATIENT

DRUGS (1)
  1. DARATUMUMAB [Suspect]
     Active Substance: DARATUMUMAB
     Indication: PLASMA CELL MYELOMA
     Route: 065

REACTIONS (11)
  - Bacteraemia [Fatal]
  - Rash [Unknown]
  - Infusion related reaction [Unknown]
  - Dyspnoea [Unknown]
  - Fatigue [Unknown]
  - Nausea [Unknown]
  - Vomiting [Unknown]
  - Pneumocystis jirovecii pneumonia [Unknown]
  - Atypical pneumonia [Unknown]
  - Pseudomonal bacteraemia [Unknown]
  - Corynebacterium bacteraemia [Fatal]
